FAERS Safety Report 9010175 (Version 2)
Quarter: 2013Q1

REPORT INFORMATION
  Report Type: Spontaneous
  Country: US (occurrence: US)
  Receive Date: 20130111
  Receipt Date: 20130208
  Transmission Date: 20140127
  Serious: No
  Sender: FDA-Public Use
  Company Number: US-009507513-1301USA003025

PATIENT
  Sex: Female

DRUGS (4)
  1. SAPHRIS [Suspect]
     Indication: SCHIZOAFFECTIVE DISORDER BIPOLAR TYPE
     Dosage: 10 MG, BID
     Route: 060
  2. DEPLIN [Suspect]
     Indication: ROUTINE HEALTH MAINTENANCE
     Dosage: UNK
     Dates: start: 201208, end: 20121215
  3. CLONAZEPAM [Concomitant]
  4. MELATONIN [Concomitant]

REACTIONS (6)
  - Aggression [Unknown]
  - Dehydroepiandrosterone increased [Unknown]
  - Blood testosterone increased [Unknown]
  - Weight increased [Unknown]
  - Irritability [Recovering/Resolving]
  - Malaise [Unknown]
